FAERS Safety Report 12218586 (Version 2)
Quarter: 2016Q2

REPORT INFORMATION
  Report Type: Spontaneous
  Country: ES (occurrence: ES)
  Receive Date: 20160329
  Receipt Date: 20160627
  Transmission Date: 20160815
  Serious: Yes (Hospitalization)
  Sender: FDA-Public Use
  Company Number: ES-PFIZER INC-2016158923

PATIENT
  Age: 20 Year
  Sex: Male

DRUGS (2)
  1. PIPERACILLIN/TAZOBACTAM [Suspect]
     Active Substance: PIPERACILLIN SODIUM\TAZOBACTAM SODIUM
     Indication: CYSTIC FIBROSIS
     Dosage: 4/0.5 G/8 HOURS
     Route: 042
  2. TOBRAMYCIN. [Concomitant]
     Active Substance: TOBRAMYCIN
     Indication: CYSTIC FIBROSIS
     Dosage: 400 MG, DAILY

REACTIONS (6)
  - Myalgia [None]
  - Leukopenia [None]
  - Pyrexia [Recovering/Resolving]
  - Abdominal pain upper [None]
  - Bone marrow toxicity [Recovering/Resolving]
  - Anaemia [None]
